FAERS Safety Report 13767571 (Version 1)
Quarter: 2017Q3

REPORT INFORMATION
  Report Type: Spontaneous
  Country: US (occurrence: US)
  Receive Date: 20170719
  Receipt Date: 20170719
  Transmission Date: 20171127
  Serious: Yes (Other)
  Sender: FDA-Public Use
  Company Number: US-GLENMARK PHARMACEUTICALS-2017GMK028199

PATIENT
  Age: 32 Year
  Sex: Female

DRUGS (2)
  1. VORICONAZOLE. [Suspect]
     Active Substance: VORICONAZOLE
     Indication: PRODUCT USED FOR UNKNOWN INDICATION
     Dosage: 200 MG, BID
     Route: 048
  2. EVEROLIMUS [Interacting]
     Active Substance: EVEROLIMUS
     Indication: HODGKIN^S DISEASE
     Dosage: 10 MG, OD
     Route: 065

REACTIONS (2)
  - Drug interaction [Unknown]
  - Nephrotic syndrome [Recovering/Resolving]
